FAERS Safety Report 6085438-1 (Version None)
Quarter: 2009Q1

REPORT INFORMATION
  Report Type: 
  Country: None (occurrence: None)
  Receive Date: 20090217
  Receipt Date: 20090128
  Transmission Date: 20090719
  Serious: No
  Sender: FDA-Public Use
  Company Number: B0558703A

PATIENT
  Age: 67 Year

DRUGS (2)
  1. CEFUROXIME SODIUM [Suspect]
  2. METRONIDAZOLE (FORMULATION UNKNOWN) (GENERIC) (METRONIDAZOLE) [Suspect]
     Dosage: ORAL
     Route: 048

REACTIONS (4)
  - DRUG INEFFECTIVE [None]
  - PERITONITIS [None]
  - PORTAL VEIN THROMBOSIS [None]
  - RENAL ABSCESS [None]
